FAERS Safety Report 5528363-4 (Version None)
Quarter: 2007Q4

REPORT INFORMATION
  Report Type: 
  Country: None (occurrence: None)
  Receive Date: 20071121
  Receipt Date: 20071112
  Transmission Date: 20080405
  Serious: Yes (Hospitalization)
  Sender: FDA-Public Use
  Company Number: 2007AL004791

PATIENT
  Age: 84 Year
  Sex: Female

DRUGS (2)
  1. PHENOBARBITAL 20MG/5ML ELIXIR [Suspect]
     Indication: GRAND MAL CONVULSION
     Dosage: 100 MG; QD; PO
     Route: 048
     Dates: start: 20050426, end: 20050511
  2. NIMODIPINE [Concomitant]

REACTIONS (21)
  - ALANINE AMINOTRANSFERASE INCREASED [None]
  - ANAEMIA [None]
  - APHASIA [None]
  - ASPARTATE AMINOTRANSFERASE INCREASED [None]
  - DRUG HYPERSENSITIVITY [None]
  - EFFUSION [None]
  - EOSINOPHILIA [None]
  - FACE OEDEMA [None]
  - HEMIPARESIS [None]
  - HEPATOMEGALY [None]
  - NUCHAL RIGIDITY [None]
  - PLEURAL EFFUSION [None]
  - PRURIGO [None]
  - PULMONARY EMBOLISM [None]
  - PYREXIA [None]
  - RASH MACULAR [None]
  - RASH MORBILLIFORM [None]
  - RASH PAPULAR [None]
  - RED BLOOD CELL SEDIMENTATION RATE INCREASED [None]
  - SUBARACHNOID HAEMORRHAGE [None]
  - SYNCOPE [None]
